FAERS Safety Report 15343262 (Version 4)
Quarter: 2024Q1

REPORT INFORMATION
  Report Type: Spontaneous
  Country: US (occurrence: US)
  Receive Date: 20180903
  Receipt Date: 20240223
  Transmission Date: 20240410
  Serious: Yes (Hospitalization, Other)
  Sender: FDA-Public Use
  Company Number: US-AUROBINDO-AUR-APL-2018-043029

PATIENT
  Age: 31 Year
  Sex: Female

DRUGS (22)
  1. DULOXETINE [Interacting]
     Active Substance: DULOXETINE
     Indication: Neuralgia
     Dosage: 20 MILLIGRAM, ONCE A DAY,EVERY MORNING
     Route: 048
  2. DULOXETINE [Interacting]
     Active Substance: DULOXETINE
     Dosage: 30 MILLIGRAM, ONCE A DAY, EVERY MORNING
     Route: 048
     Dates: end: 20160613
  3. DULOXETINE [Interacting]
     Active Substance: DULOXETINE
     Dosage: 40 MILLIGRAM, ONCE A DAY,EVERY MORNING
     Route: 048
  4. DULOXETINE [Interacting]
     Active Substance: DULOXETINE
     Dosage: 60 MILLIGRAM, ONCE A DAY
     Route: 048
  5. GABAPENTIN [Suspect]
     Active Substance: GABAPENTIN
     Indication: Neuralgia
     Dosage: 300 MILLIGRAM, 3 TIMES A DAY
     Route: 065
  6. GABAPENTIN [Suspect]
     Active Substance: GABAPENTIN
     Dosage: 1200 MILLIGRAM, 3 TIMES A DAY
     Route: 065
  7. GABAPENTIN [Suspect]
     Active Substance: GABAPENTIN
     Dosage: 600 MILLIGRAM, 3 TIMES A DAY
     Route: 065
  8. GABAPENTIN [Suspect]
     Active Substance: GABAPENTIN
     Dosage: 900 MILLIGRAM, 3 TIMES A DAY
     Route: 065
  9. AMITRIPTYLINE HYDROCHLORIDE [Interacting]
     Active Substance: AMITRIPTYLINE HYDROCHLORIDE
     Indication: Neuralgia
     Dosage: 20 MILLIGRAM, ONCE A DAY,EVERY EVENING
     Route: 048
  10. AMITRIPTYLINE HYDROCHLORIDE [Interacting]
     Active Substance: AMITRIPTYLINE HYDROCHLORIDE
     Dosage: 10 MILLIGRAM, ONCE A DAY
     Route: 048
     Dates: start: 20160520
  11. AMITRIPTYLINE HYDROCHLORIDE [Interacting]
     Active Substance: AMITRIPTYLINE HYDROCHLORIDE
     Dosage: 30 MILLIGRAM, ONCE A DAY
     Route: 048
  12. AMITRIPTYLINE HYDROCHLORIDE [Interacting]
     Active Substance: AMITRIPTYLINE HYDROCHLORIDE
     Dosage: 50 MILLIGRAM, ONCE A DAY
     Route: 048
  13. NYSTATIN [Concomitant]
     Active Substance: NYSTATIN
     Indication: Rash
     Dosage: UP TO 3 TIMES A DAY AS  NEEDED (100000[IU]/G) ; AS NECESSARY
     Route: 061
  14. DOCUSATE [Concomitant]
     Active Substance: DOCUSATE
     Indication: Product used for unknown indication
     Dosage: UNK UNK, ONCE A DAY (MINI ENEMA PER RECTUM DAILY)
     Route: 054
  15. GLATIRAMER ACETATE [Concomitant]
     Active Substance: GLATIRAMER ACETATE
     Indication: Product used for unknown indication
     Dosage: 40 MILLIGRAM,3 TIMES PER WEEK
     Route: 058
  16. NITROGLYCERIN [Concomitant]
     Active Substance: NITROGLYCERIN
     Indication: Hypertension
     Dosage: UNK
     Route: 062
  17. HYDRALAZINE [Concomitant]
     Active Substance: HYDRALAZINE HYDROCHLORIDE
     Indication: Hypertension
     Dosage: UNK
     Route: 048
  18. TIZANIDINE HYDROCHLORIDE [Concomitant]
     Active Substance: TIZANIDINE HYDROCHLORIDE
     Indication: Product used for unknown indication
     Dosage: 8 MILLIGRAM, 3 TIMES A DAY (8 HOURS)
     Route: 048
  19. DIAZEPAM [Concomitant]
     Active Substance: DIAZEPAM
     Indication: Product used for unknown indication
     Dosage: 5 MILLIGRAM, 3 TIMES A DAY
     Route: 048
  20. ACETAMINOPHEN [Concomitant]
     Active Substance: ACETAMINOPHEN
     Indication: Pain
     Dosage: 1 GRAM, 8 HOUR,AS NEEDED
     Route: 048
  21. ACETAMINOPHEN [Concomitant]
     Active Substance: ACETAMINOPHEN
     Indication: Neuralgia
  22. LEVOFLOXACIN [Concomitant]
     Active Substance: LEVOFLOXACIN
     Indication: Urinary tract infection
     Dosage: UNK
     Route: 065

REACTIONS (5)
  - Autonomic dysreflexia [Recovered/Resolved]
  - Drug interaction [Recovered/Resolved]
  - Fatigue [Unknown]
  - Drug ineffective [Unknown]
  - Hypertension [Recovered/Resolved]
